FAERS Safety Report 11559730 (Version 1)
Quarter: 2015Q3

REPORT INFORMATION
  Report Type: Spontaneous
  Country: US (occurrence: None)
  Receive Date: 20150925
  Receipt Date: 20150925
  Transmission Date: 20151125
  Serious: Yes (Other)
  Sender: FDA-Public Use
  Company Number: None

PATIENT
  Age: 72 Year
  Sex: Female
  Weight: 66.68 kg

DRUGS (7)
  1. BELSOMRA [Suspect]
     Active Substance: SUVOREXANT
     Indication: INSOMNIA
     Dosage: PILLS
     Dates: start: 20150912, end: 20150913
  2. SIMVASTATIN. [Concomitant]
     Active Substance: SIMVASTATIN
  3. B-12-C [Concomitant]
  4. RALOXIFENE. [Concomitant]
     Active Substance: RALOXIFENE
  5. NEXIUM [Concomitant]
     Active Substance: ESOMEPRAZOLE MAGNESIUM
  6. VITAMINS [Concomitant]
     Active Substance: VITAMINS
  7. MULTIVITAMINS [Concomitant]
     Active Substance: VITAMINS

REACTIONS (4)
  - Muscular weakness [None]
  - Movement disorder [None]
  - Pain [None]
  - Headache [None]

NARRATIVE: CASE EVENT DATE: 20150912
